FAERS Safety Report 10761572 (Version 1)
Quarter: 2015Q1

REPORT INFORMATION
  Report Type: Spontaneous
  Country: US (occurrence: None)
  Receive Date: 20150203
  Receipt Date: 20150203
  Transmission Date: 20150721
  Serious: Yes (Hospitalization)
  Sender: FDA-Public Use
  Company Number: None

PATIENT
  Age: 56 Year
  Sex: Female
  Weight: 116.3 kg

DRUGS (1)
  1. SOTALOL. [Suspect]
     Active Substance: SOTALOL
     Indication: ATRIAL FIBRILLATION
     Route: 048
     Dates: start: 20141231, end: 20150111

REACTIONS (4)
  - Bradycardia [None]
  - Presyncope [None]
  - Crying [None]
  - Orthostatic hypotension [None]

NARRATIVE: CASE EVENT DATE: 20150111
